FAERS Safety Report 21591442 (Version 1)
Quarter: 2022Q4

REPORT INFORMATION
  Report Type: Report from Study
  Country: US (occurrence: US)
  Receive Date: 20221114
  Receipt Date: 20221114
  Transmission Date: 20230113
  Serious: No
  Sender: FDA-Public Use
  Company Number: US-INCYTE CORPORATION-2022IN010422

PATIENT

DRUGS (1)
  1. JAKAFI [Suspect]
     Active Substance: RUXOLITINIB
     Indication: Polycythaemia vera
     Dosage: TAKES JAKAFI 5MG ^EVERY OTHER DAY^, AS SHE TAKES TWO TABLETS ON ONE DAY AND ONLY ONE TABLET ON THE N
     Route: 065

REACTIONS (1)
  - Product availability issue [Unknown]
